FAERS Safety Report 24115816 (Version 2)
Quarter: 2024Q3

REPORT INFORMATION
  Report Type: Report from Study
  Country: JP (occurrence: JP)
  Receive Date: 20240721
  Receipt Date: 20240806
  Transmission Date: 20241017
  Serious: Yes (Death, Other)
  Sender: AKEBIA THERAPEUTICS
  Company Number: JP-AKEBIA THERAPEUTICS, INC.-JP-AKEB-22-022457

PATIENT

DRUGS (4)
  1. VADADUSTAT [Suspect]
     Active Substance: VADADUSTAT
     Indication: Nephrogenic anaemia
     Dosage: 300 MILLIGRAM, QD
     Route: 048
     Dates: start: 20210204, end: 20210218
  2. DARBEPOETIN ALFA [Concomitant]
     Active Substance: DARBEPOETIN ALFA
     Indication: Nephrogenic anaemia
     Dosage: 60 MICROGRAM, 1/WEEK
     Route: 042
     Dates: end: 20210209
  3. NU-LOTAN [Concomitant]
     Active Substance: LOSARTAN POTASSIUM
     Indication: Product used for unknown indication
     Dosage: 2525 MILLIGRAM, QD
     Route: 048
  4. LOSARTAN POTASSIUM [Concomitant]
     Active Substance: LOSARTAN POTASSIUM
     Indication: Illness
     Dosage: 25 MILLIGRAM, QD
     Route: 048
     Dates: end: 20210314

REACTIONS (2)
  - Death [Fatal]
  - Peritonitis [Recovered/Resolved]

NARRATIVE: CASE EVENT DATE: 20210217
